FAERS Safety Report 25174385 (Version 1)
Quarter: 2025Q2

REPORT INFORMATION
  Report Type: Spontaneous
  Country: FR (occurrence: FR)
  Receive Date: 20250408
  Receipt Date: 20250408
  Transmission Date: 20250716
  Serious: Yes (Life-Threatening)
  Sender: ABBVIE
  Company Number: FR-ABBVIE-6216407

PATIENT
  Sex: Female

DRUGS (1)
  1. BOTOX [Suspect]
     Active Substance: ONABOTULINUMTOXINA
     Indication: Product used for unknown indication
     Route: 065

REACTIONS (5)
  - Botulism [Unknown]
  - Dental caries [Unknown]
  - Product administered from unauthorised provider [Unknown]
  - Pain in jaw [Unknown]
  - Paralysis [Unknown]
